FAERS Safety Report 10192239 (Version 1)
Quarter: 2014Q2

REPORT INFORMATION
  Report Type: Spontaneous
  Country: US (occurrence: US)
  Receive Date: 20140523
  Receipt Date: 20140523
  Transmission Date: 20141212
  Serious: No
  Sender: FDA-Public Use
  Company Number: US-009507513-1405USA006307

PATIENT
  Sex: Female

DRUGS (2)
  1. ASMANEX TWISTHALER [Suspect]
     Indication: ASTHMA
     Dosage: 1 INHALATION TWICE DAILY
     Route: 055
  2. VENTOLIN (ALBUTEROL SULFATE) [Concomitant]

REACTIONS (5)
  - Chest discomfort [Not Recovered/Not Resolved]
  - Wheezing [Not Recovered/Not Resolved]
  - Accidental exposure to product [Unknown]
  - Drug dose omission [Unknown]
  - Product quality issue [Unknown]
